FAERS Safety Report 11356306 (Version 1)
Quarter: 2015Q3

REPORT INFORMATION
  Report Type: Spontaneous
  Country: US (occurrence: US)
  Receive Date: 20150807
  Receipt Date: 20150807
  Transmission Date: 20151125
  Serious: Yes (Other)
  Sender: FDA-Public Use
  Company Number: US-INCYTE CORPORATION-2015IN003764

PATIENT
  Age: 85 Year
  Sex: Female

DRUGS (2)
  1. MEGESTROL [Concomitant]
     Active Substance: MEGESTROL
  2. JAKAFI [Suspect]
     Active Substance: RUXOLITINIB
     Dosage: 10 MG, BID
     Route: 048
     Dates: start: 20150626

REACTIONS (2)
  - Dysphagia [Unknown]
  - Regurgitation [Unknown]

NARRATIVE: CASE EVENT DATE: 20150724
